FAERS Safety Report 18681088 (Version 3)
Quarter: 2022Q4

REPORT INFORMATION
  Report Type: Report from Study
  Country: US (occurrence: US)
  Receive Date: 20201229
  Receipt Date: 20221026
  Transmission Date: 20230113
  Serious: Yes (Other)
  Sender: FDA-Public Use
  Company Number: US-BIOGEN-2020BI00959995

PATIENT
  Sex: Female
  Weight: 59 kg

DRUGS (24)
  1. SPINRAZA [Suspect]
     Active Substance: NUSINERSEN
     Indication: Spinal muscular atrophy
     Route: 050
     Dates: start: 201801, end: 202012
  2. SPINRAZA [Suspect]
     Active Substance: NUSINERSEN
     Route: 050
     Dates: start: 20220216
  3. SPINRAZA [Suspect]
     Active Substance: NUSINERSEN
     Route: 050
     Dates: start: 20180130
  4. BETAMETHASONE VALERATE 0.12% [Concomitant]
     Indication: Product used for unknown indication
     Dosage: APPLY SMALL AMOUNT OF FOAM TO SCALP TWICE A DAY (PATIENT NOT TAKING)
     Route: 050
     Dates: start: 20220114
  5. CLONAZEPAM [Concomitant]
     Active Substance: CLONAZEPAM
     Indication: Product used for unknown indication
     Dosage: TAKE 2 TABS EVERY OTHER DAY ALONG WITH THREE 0.5 MG TABLETS FOR TOTAL OF 5.5 MG EVERY OTHER DAY (...
     Route: 050
     Dates: start: 20210108
  6. KETOCONAZOLE [Concomitant]
     Active Substance: KETOCONAZOLE
     Indication: Product used for unknown indication
     Dosage: SHAMPOO DAILY LEAVE ON FOR 5-10 MINS THEN RINSE
     Route: 050
     Dates: start: 20220127
  7. NARCAN [Concomitant]
     Active Substance: NALOXONE HYDROCHLORIDE
     Indication: Product used for unknown indication
     Dosage: SPRAY 0.1 ML (4 MG) UNTO ONE NOSTRIL FOR SUSPECTED OVERDOSE. REPEAT INTO OTHER NOSTRIL AFTER 2 TO...
     Route: 050
     Dates: start: 20190114
  8. PHENERGAN [Concomitant]
     Active Substance: PROMETHAZINE HYDROCHLORIDE
     Indication: Product used for unknown indication
     Dosage: TAKE 25 MG BY MOUTH EVERY 6 HRS AS NEEDED
     Route: 050
     Dates: start: 20211019
  9. PHENERGAN [Concomitant]
     Active Substance: PROMETHAZINE HYDROCHLORIDE
     Dosage: EVERY 6 HOURS PRN
     Route: 050
  10. RISPERDAL [Concomitant]
     Active Substance: RISPERIDONE
     Indication: Product used for unknown indication
     Dosage: TAKE 1 TABLET (1 MG TOTAL) BY MOUTH 2 TIMES A DAY
     Route: 050
     Dates: start: 20220321
  11. RISPERDAL [Concomitant]
     Active Substance: RISPERIDONE
     Route: 050
  12. ALDACTONE [Concomitant]
     Active Substance: SPIRONOLACTONE
     Indication: Product used for unknown indication
     Dosage: TAKE 50 MG BY MOUTH 2 TIMES A DAY
     Route: 050
  13. ALDACTONE [Concomitant]
     Active Substance: SPIRONOLACTONE
     Route: 050
  14. BELSOMRA [Concomitant]
     Active Substance: SUVOREXANT
     Indication: Product used for unknown indication
     Dosage: TAKE 1 TAB (20 MG TOTAL) BY MOUTH EVERY BEDTIME
     Route: 050
     Dates: start: 20201212
  15. EFFEXOR [Concomitant]
     Active Substance: VENLAFAXINE HYDROCHLORIDE
     Indication: Product used for unknown indication
     Dosage: TAKE 1 TAB (25 MG TOTAL) BY MOUTH 3 TIMES A DAY
     Route: 050
     Dates: start: 20220321
  16. PAXIL [Concomitant]
     Active Substance: PAROXETINE HYDROCHLORIDE
     Indication: Product used for unknown indication
     Dosage: EVERY NIGHT AT BEDTIME
     Route: 050
  17. SEROQUEL [Concomitant]
     Active Substance: QUETIAPINE FUMARATE
     Indication: Insomnia
     Dosage: AT NIGHT IF NEEDED
     Route: 050
  18. PULMICORT TURBUHALER [Concomitant]
     Active Substance: BUDESONIDE
     Indication: Product used for unknown indication
     Dosage: RINSE MOUTH WITH WATER AFTER USE TO REDUCE AFTERTASTE AND INCIDENCE OF CANDIDIASIS. DO NOT SWALLOW
     Route: 050
  19. BUSPAR [Concomitant]
     Active Substance: BUSPIRONE HYDROCHLORIDE
     Indication: Product used for unknown indication
     Route: 050
  20. LOMOTIL [Concomitant]
     Active Substance: ATROPINE SULFATE\DIPHENOXYLATE HYDROCHLORIDE
     Indication: Product used for unknown indication
     Dosage: 2.5-0.025 MG PER TABLET; 2 TABLETS, ORAL, 4 TIMES DAILY PRN
     Route: 050
  21. LOMOTIL [Concomitant]
     Active Substance: ATROPINE SULFATE\DIPHENOXYLATE HYDROCHLORIDE
     Dosage: 2 MG, ORAL, 2 TIMES DAILY PRN
     Route: 050
  22. PULMOZYME [Concomitant]
     Active Substance: DORNASE ALFA
     Indication: Product used for unknown indication
     Dosage: NEBULIZATION, 2 TIMES DAILY
     Route: 050
  23. IMODIUM [Concomitant]
     Active Substance: LOPERAMIDE HYDROCHLORIDE
     Indication: Product used for unknown indication
     Route: 050
  24. SUVOREXANT [Concomitant]
     Active Substance: SUVOREXANT
     Indication: Product used for unknown indication
     Dosage: NIGHTLY PRN
     Route: 050

REACTIONS (7)
  - General physical health deterioration [Not Recovered/Not Resolved]
  - Pelvic pain [Unknown]
  - Arthralgia [Unknown]
  - Muscular weakness [Unknown]
  - Asthenia [Unknown]
  - Myofascial pain syndrome [Unknown]
  - Intervertebral disc degeneration [Unknown]

NARRATIVE: CASE EVENT DATE: 20200101
